FAERS Safety Report 20523327 (Version 2)
Quarter: 2022Q2

REPORT INFORMATION
  Report Type: Other
  Country: US (occurrence: US)
  Receive Date: 20220227
  Receipt Date: 20220412
  Transmission Date: 20220721
  Serious: No
  Sender: FDA-Public Use
  Company Number: US-Covis Pharma GmbH-2022COV00473

PATIENT
  Age: 25 Year
  Sex: Female

DRUGS (1)
  1. MAKENA [Suspect]
     Active Substance: HYDROXYPROGESTERONE CAPROATE
     Indication: Premature delivery
     Route: 058
     Dates: start: 20220209, end: 20220209

REACTIONS (4)
  - Migraine [Recovered/Resolved]
  - Pharyngeal swelling [Recovered/Resolved]
  - Skin tightness [Unknown]
  - Injection site warmth [Unknown]

NARRATIVE: CASE EVENT DATE: 20220209
